FAERS Safety Report 5755252-2 (Version None)
Quarter: 2008Q2

REPORT INFORMATION
  Report Type: 
  Country: None (occurrence: None)
  Receive Date: 20080528
  Receipt Date: 20080516
  Transmission Date: 20081010
  Serious: Yes (Hospitalization)
  Sender: FDA-Public Use
  Company Number: E2090-00460-SPO-JP

PATIENT
  Age: 70 Year
  Sex: Male

DRUGS (8)
  1. ZONISAMIDE [Suspect]
     Indication: CONVULSION
     Dosage: ORAL
     Route: 048
     Dates: start: 20080101
  2. AMLODIPINE BESYLATE [Concomitant]
  3. CANDESARTAN CILEXETIL [Concomitant]
  4. GASMOTIN (MOSAPRIDE CITRATE) [Concomitant]
  5. AMOBAN (ZOPICLONE) [Concomitant]
  6. HASEN (VOGLIBOSE) [Concomitant]
  7. LIPITOR (ATORVASTATIN0 [Concomitant]
  8. AMARYL [Concomitant]

REACTIONS (5)
  - DIARRHOEA [None]
  - DRUG ERUPTION [None]
  - HEPATIC FUNCTION ABNORMAL [None]
  - HICCUPS [None]
  - RENAL DISORDER [None]
